FAERS Safety Report 8200299-X (Version None)
Quarter: 2012Q1

REPORT INFORMATION
  Report Type: 
  Country: None (occurrence: None)
  Receive Date: 20120312
  Receipt Date: 20120306
  Transmission Date: 20120608
  Serious: Yes (Other)
  Sender: FDA-Public Use
  Company Number: US-BAYER-2012-016951

PATIENT
  Age: 47 Year
  Sex: Female
  Weight: 149 kg

DRUGS (2)
  1. MAGNEVIST [Suspect]
     Indication: NUCLEAR MAGNETIC RESONANCE IMAGING
     Dosage: 12 ML, ONCE
     Route: 042
  2. MAGNEVIST [Suspect]
     Indication: PELVIC MASS

REACTIONS (3)
  - URTICARIA [None]
  - VOMITING [None]
  - PRURITUS [None]
